FAERS Safety Report 11520451 (Version 1)
Quarter: 2015Q3

REPORT INFORMATION
  Report Type: Report from Study
  Country: ES (occurrence: ES)
  Receive Date: 20150918
  Receipt Date: 20150918
  Transmission Date: 20151125
  Serious: No
  Sender: FDA-Public Use
  Company Number: ES-UCBSA-2014020887

PATIENT
  Age: 31 Year
  Sex: Male
  Weight: 89 kg

DRUGS (1)
  1. *CARBAMAZEPINE [Suspect]
     Active Substance: CARBAMAZEPINE
     Indication: EPILEPSY
     Dosage: MG 2X/DAY (BID)
     Route: 048
     Dates: start: 20140214

REACTIONS (1)
  - Bradycardia [Not Recovered/Not Resolved]

NARRATIVE: CASE EVENT DATE: 20141203
